FAERS Safety Report 12545533 (Version 1)
Quarter: 2016Q3

REPORT INFORMATION
  Report Type: Spontaneous
  Country: DE (occurrence: DE)
  Receive Date: 20160711
  Receipt Date: 20160711
  Transmission Date: 20161109
  Serious: Yes (Hospitalization)
  Sender: FDA-Public Use
  Company Number: DE-TEVA-672567GER

PATIENT
  Age: 17 Year
  Sex: Male
  Weight: 60 kg

DRUGS (1)
  1. METOCLOPRAMID [Suspect]
     Active Substance: METOCLOPRAMIDE
     Indication: NAUSEA
     Dosage: 50 MILLIGRAM DAILY;
     Route: 048
     Dates: start: 20160417, end: 20160420

REACTIONS (2)
  - Trismus [Recovering/Resolving]
  - Tooth fracture [Recovering/Resolving]

NARRATIVE: CASE EVENT DATE: 20160620
